FAERS Safety Report 6328659-2 (Version None)
Quarter: 2009Q3

REPORT INFORMATION
  Report Type: 
  Country: None (occurrence: None)
  Receive Date: 20090826
  Receipt Date: 20070920
  Transmission Date: 20100115
  Serious: Yes (Hospitalization, Other)
  Sender: FDA-Public Use
  Company Number: US-ASTRAZENECA-2006UW23057

PATIENT
  Age: 46 Year
  Sex: Male

DRUGS (24)
  1. SEROQUEL [Suspect]
     Indication: SCHIZOPHRENIA
     Dosage: 100MG TO 1200 MG
     Route: 048
     Dates: start: 20010101
  2. SEROQUEL [Suspect]
     Indication: BIPOLAR DISORDER
     Dosage: 100MG TO 1200 MG
     Route: 048
     Dates: start: 20010101
  3. SEROQUEL [Suspect]
     Indication: DEPRESSION
     Dosage: 100MG TO 1200 MG
     Route: 048
     Dates: start: 20010101
  4. SEROQUEL [Suspect]
     Route: 048
     Dates: start: 20010101, end: 20050101
  5. SEROQUEL [Suspect]
     Route: 048
     Dates: start: 20010101, end: 20050101
  6. SEROQUEL [Suspect]
     Route: 048
     Dates: start: 20010101, end: 20050101
  7. ZYPREXA [Concomitant]
     Dosage: 5 MG ONE EVERY NIGHT
     Route: 048
     Dates: start: 20010102
  8. PROPRANOLOL [Concomitant]
     Dates: start: 20061114
  9. RISPERDAL [Concomitant]
     Dosage: 2 MG IN MORNING AND 4MG AT NIGHT, 2MG ONE TWO TIMES A DAY, 3 MG EVERY MORNING AND 4MG AT BEDTIME
     Route: 048
     Dates: start: 20050824
  10. TRAZODONE HCL [Concomitant]
     Dosage: 150MG-225MG
     Dates: start: 20050824
  11. ZOLOFT [Concomitant]
     Dosage: 50MG ONE EVERY DAY, 100MG IN MORNING, 100MG ONE AT NIGHT
     Route: 048
     Dates: start: 20010102
  12. METOPROLOL [Concomitant]
     Indication: HYPERTENSION
     Dosage: 25 MG ONE EVERY DAY
     Route: 048
     Dates: start: 20050824
  13. METOPROLOL [Concomitant]
     Indication: TACHYCARDIA
     Dosage: 25 MG ONE EVERY DAY
     Route: 048
     Dates: start: 20050824
  14. NIASPAN ER [Concomitant]
     Indication: HYPERLIPIDAEMIA
     Dosage: 500 MG ONE AT NIGHT, 500 MG TWICE A DAY
     Route: 048
     Dates: start: 20050824
  15. FISH OIL [Concomitant]
     Indication: HYPERLIPIDAEMIA
     Dates: start: 20060306
  16. LITHIUM CARBONATE [Concomitant]
     Dates: start: 19960607
  17. DEPAKOTE [Concomitant]
     Dosage: 500 MG IN MORNING AND 1000 AT NIGHT
     Dates: start: 19960607
  18. CHLORPROMAZINE [Concomitant]
     Route: 048
     Dates: start: 20010102
  19. COGENTIN [Concomitant]
     Dosage: ONE TWO TIMES A DAY
     Dates: start: 20031030
  20. HALDOL [Concomitant]
     Dosage: ONE TWO TIMES A DAY
     Dates: start: 20031030
  21. NORVASC [Concomitant]
     Dates: start: 20050322
  22. LIPITOR [Concomitant]
     Indication: HYPERLIPIDAEMIA
     Dosage: 20 MG ONE EVERY NIGHT
     Route: 048
     Dates: start: 20050322
  23. LOPID [Concomitant]
     Dates: start: 20050322
  24. GEODON [Concomitant]
     Dosage: 80MG IN MORNING, 60 MG EVERY NIGHT
     Dates: start: 20050322

REACTIONS (6)
  - ALCOHOLIC PANCREATITIS [None]
  - PANCREATECTOMY [None]
  - PANCREATIC PSEUDOCYST [None]
  - PANCREATITIS [None]
  - PANCREATITIS ACUTE [None]
  - PANCREATITIS CHRONIC [None]
